FAERS Safety Report 6651992-1 (Version None)
Quarter: 2010Q1

REPORT INFORMATION
  Report Type: 
  Country: None (occurrence: None)
  Receive Date: 20100325
  Receipt Date: 20100323
  Transmission Date: 20100710
  Serious: Yes (Other)
  Sender: FDA-Public Use
  Company Number: PHHY2010AT17662

PATIENT
  Age: 62 Year
  Sex: Male

DRUGS (1)
  1. ACLASTA [Suspect]
     Indication: OSTEOPOROSIS
     Dosage: 5 MG
     Route: 042

REACTIONS (4)
  - BONE PAIN [None]
  - CHILLS [None]
  - PYREXIA [None]
  - TREMOR [None]
